FAERS Safety Report 7535765-3 (Version None)
Quarter: 2011Q2

REPORT INFORMATION
  Report Type: 
  Country: None (occurrence: None)
  Receive Date: 20110609
  Receipt Date: 20110325
  Transmission Date: 20111010
  Serious: No
  Sender: FDA-Public Use
  Company Number: US-KINGPHARMUSA00001-K201100352

PATIENT
  Age: 40 Year
  Sex: Male
  Weight: 74.83 kg

DRUGS (12)
  1. OXYCODONE HCL [Concomitant]
     Indication: PAIN
  2. RESTORIL [Concomitant]
  3. EMBEDA [Suspect]
     Dosage: 30 MG, SINGLE
     Dates: start: 20110201
  4. FLECTOR [Concomitant]
  5. RESTASIS [Concomitant]
  6. PREDNISONE [Concomitant]
     Dosage: UNK
  7. KLONOPIN [Concomitant]
  8. TYLENOL W/ CODEINE [Concomitant]
     Indication: PAIN
  9. EMBEDA [Suspect]
     Dosage: 30 MG, SINGLE
     Dates: start: 20110201
  10. PLAQUENIL [Concomitant]
  11. EMBEDA [Suspect]
     Indication: ARTHRITIS
     Dosage: 30 MG, SINGLE
     Dates: start: 20110201
  12. METHOTREXATE [Concomitant]
     Indication: AUTOIMMUNE DISORDER

REACTIONS (2)
  - ABDOMINAL PAIN UPPER [None]
  - ABDOMINAL DISCOMFORT [None]
